FAERS Safety Report 4589270-7 (Version None)
Quarter: 2005Q1

REPORT INFORMATION
  Report Type: 
  Country: None (occurrence: None)
  Receive Date: 20050216
  Receipt Date: 20050203
  Transmission Date: 20050727
  Serious: Yes (Hospitalization)
  Sender: FDA-Public Use
  Company Number: SUSI-2005-00072

PATIENT
  Age: 8 Year
  Sex: Male
  Weight: 61.2 kg

DRUGS (2)
  1. ADDERALL [Suspect]
     Indication: ATTENTION DEFICIT/HYPERACTIVITY DISORDER
     Dosage: SEE IMAGE
     Dates: start: 20041018, end: 20041018
  2. ADDERALL [Suspect]
     Indication: ATTENTION DEFICIT/HYPERACTIVITY DISORDER
     Dosage: SEE IMAGE
     Dates: start: 20030101

REACTIONS (6)
  - CIRCULATORY COLLAPSE [None]
  - DRUG INEFFECTIVE [None]
  - LOSS OF CONSCIOUSNESS [None]
  - MOVEMENT DISORDER [None]
  - TIC [None]
  - TOURETTE'S DISORDER [None]
